FAERS Safety Report 22354419 (Version 2)
Quarter: 2024Q3

REPORT INFORMATION
  Report Type: Report from Study
  Country: US (occurrence: US)
  Receive Date: 20230523
  Receipt Date: 20240729
  Transmission Date: 20241017
  Serious: Yes (Other)
  Sender: UCB
  Company Number: US-UCBSA-2023025749

PATIENT
  Age: 31 Year
  Sex: Female
  Weight: 83.9 kg

DRUGS (9)
  1. CERTOLIZUMAB PEGOL [Suspect]
     Active Substance: CERTOLIZUMAB PEGOL
     Indication: Psoriatic arthropathy
     Dosage: 200 MILLIGRAM, 2X/MONTH
     Route: 058
     Dates: start: 20210909, end: 20230421
  2. INFLUENZA VIRUS VACCINE [Concomitant]
     Active Substance: INFLUENZA VIRUS VACCINE
     Indication: Influenza immunisation
     Dosage: 1 SHOT
     Route: 030
     Dates: start: 20221128, end: 20221128
  3. MODERNA COVID-19 VACCINE [Concomitant]
     Active Substance: ELASOMERAN
     Indication: Product used for unknown indication
     Dosage: 1 SHOT, THIRD DOSE
     Route: 030
     Dates: start: 20210913, end: 20210913
  4. MODERNA COVID-19 VACCINE [Concomitant]
     Active Substance: ELASOMERAN
     Dosage: 1 SHOT, BOOSTER DOSE
     Route: 030
     Dates: start: 20220820, end: 20220820
  5. MINERALS\VITAMINS [Concomitant]
     Active Substance: MINERALS\VITAMINS
     Indication: Product used for unknown indication
     Dosage: 1 OZ PER DAY
     Route: 048
     Dates: start: 20210515, end: 20221211
  6. MINERALS\VITAMINS [Concomitant]
     Active Substance: MINERALS\VITAMINS
     Dosage: 1 TABLESPOON 1 DAY
     Route: 048
     Dates: start: 20221212, end: 20230415
  7. MINERALS\VITAMINS [Concomitant]
     Active Substance: MINERALS\VITAMINS
     Dosage: 4 PILLS 1 DAY
     Route: 048
     Dates: start: 20230416, end: 20230506
  8. DIPHTHERIA AND TETANUS TOXOIDS AND PERTUSSIS VACCINE ADSORBED NOS [Concomitant]
     Active Substance: DIPHTHERIA AND TETANUS TOXOIDS AND PERTUSSIS VACCINE
     Indication: Immunisation
     Dosage: 1 SHOT
     Route: 030
     Dates: start: 20230421, end: 20230421
  9. ADACEL TDAP [Concomitant]
     Active Substance: TETANUS TOXOID, REDUCED DIPHTHERIA TOXOID AND ACELLULAR PERTUSSIS VACCINE ADSORBED, TDAP
     Indication: Immunisation
     Dosage: 1 SHOT, PER DAY
     Route: 030
     Dates: start: 20230214, end: 20230214

REACTIONS (8)
  - Foetal hypokinesia [Unknown]
  - Nasopharyngitis [Unknown]
  - Illness [Unknown]
  - Nausea [Unknown]
  - Arthralgia [Unknown]
  - Induced labour [Unknown]
  - Maternal exposure before pregnancy [Unknown]
  - Maternal exposure during pregnancy [Unknown]

NARRATIVE: CASE EVENT DATE: 20220807
